FAERS Safety Report 5262256-5 (Version None)
Quarter: 2007Q1

REPORT INFORMATION
  Report Type: 
  Country: None (occurrence: None)
  Receive Date: 20070308
  Receipt Date: 20070223
  Transmission Date: 20070707
  Serious: Yes (Death, Other)
  Sender: FDA-Public Use
  Company Number: 2007RR-06000

PATIENT
  Age: 47 Year
  Sex: Male

DRUGS (1)
  1. SERTRALINE [Suspect]
     Dosage: 200 MG, QD,
     Dates: end: 20050901

REACTIONS (2)
  - ANTIDEPRESSANT DRUG LEVEL INCREASED [None]
  - CIRCULATORY COLLAPSE [None]
